FAERS Safety Report 25595348 (Version 1)
Quarter: 2025Q3

REPORT INFORMATION
  Report Type: Spontaneous
  Country: GB (occurrence: GB)
  Receive Date: 20250723
  Receipt Date: 20250723
  Transmission Date: 20251020
  Serious: Yes (Hospitalization, Other)
  Sender: SANOFI AVENTIS
  Company Number: GB-DialogSolutions-SAAVPROD-PI798958-C1

PATIENT
  Age: 69 Year
  Sex: Female

DRUGS (11)
  1. FLUDARABINE PHOSPHATE [Suspect]
     Active Substance: FLUDARABINE PHOSPHATE
     Indication: Acute myeloid leukaemia (in remission)
  2. FLUDARABINE PHOSPHATE [Suspect]
     Active Substance: FLUDARABINE PHOSPHATE
     Indication: Acute myeloid leukaemia (in remission)
  3. ALEMTUZUMAB [Suspect]
     Active Substance: ALEMTUZUMAB
     Indication: Lymphodepletion
     Route: 041
  4. CYTARABINE [Suspect]
     Active Substance: CYTARABINE
     Indication: Acute myeloid leukaemia (in remission)
  5. IDARUBICIN [Suspect]
     Active Substance: IDARUBICIN
     Indication: Acute myeloid leukaemia (in remission)
  6. AZACITIDINE [Suspect]
     Active Substance: AZACITIDINE
     Indication: Acute myeloid leukaemia (in remission)
  7. CYCLOSPORINE [Suspect]
     Active Substance: CYCLOSPORINE
     Indication: Prophylaxis against graft versus host disease
  8. CYCLOSPORINE [Suspect]
     Active Substance: CYCLOSPORINE
  9. BUSULFAN [Suspect]
     Active Substance: BUSULFAN
     Indication: Acute myeloid leukaemia (in remission)
     Route: 042
  10. CASPOFUNGIN [Concomitant]
     Active Substance: CASPOFUNGIN
     Indication: Evidence based treatment
     Route: 042
  11. POSACONAZOLE [Concomitant]
     Active Substance: POSACONAZOLE
     Indication: Antifungal prophylaxis

REACTIONS (9)
  - Disseminated mucormycosis [Recovered/Resolved]
  - Lung consolidation [Recovered/Resolved]
  - Splenic abscess [Recovered/Resolved]
  - Lymphopenia [Recovered/Resolved]
  - Tremor [Recovered/Resolved]
  - Coordination abnormal [Recovered/Resolved]
  - Mucormycosis [Unknown]
  - Epstein-Barr virus infection reactivation [Recovered/Resolved]
  - Off label use [Unknown]
